FAERS Safety Report 5022305-6 (Version None)
Quarter: 2006Q2

REPORT INFORMATION
  Report Type: 
  Country: None (occurrence: None)
  Receive Date: 20060609
  Receipt Date: 20060602
  Transmission Date: 20061013
  Serious: Yes (Other)
  Sender: FDA-Public Use
  Company Number: DK-GLAXOSMITHKLINE-B0426762A

PATIENT
  Sex: Female
  Weight: 61 kg

DRUGS (4)
  1. IMIGRAN [Suspect]
     Indication: MIGRAINE
     Dosage: 50MG UNKNOWN
     Route: 065
  2. MIGEA [Concomitant]
     Indication: DRUG USE FOR UNKNOWN INDICATION
     Dosage: 200MG UNKNOWN
     Route: 065
     Dates: start: 20050601, end: 20060510
  3. YASMIN [Concomitant]
     Indication: DRUG USE FOR UNKNOWN INDICATION
     Route: 065
     Dates: start: 20040501, end: 20060510
  4. TREO [Concomitant]
     Indication: DRUG USE FOR UNKNOWN INDICATION
     Route: 065
     Dates: start: 20060405, end: 20060420

REACTIONS (2)
  - DRUG ABUSER [None]
  - HEPATITIS TOXIC [None]
